FAERS Safety Report 6984695-4 (Version None)
Quarter: 2010Q3

REPORT INFORMATION
  Report Type: 
  Country: None (occurrence: None)
  Receive Date: 20100915
  Receipt Date: 20100910
  Transmission Date: 20110219
  Serious: Yes (Other)
  Sender: FDA-Public Use
  Company Number: US-NOVOPROD-311683

PATIENT
  Sex: Female

DRUGS (2)
  1. VAGIFEM [Suspect]
     Indication: VULVOVAGINAL DRYNESS
     Dosage: 25 MCG, UNK
     Route: 067
     Dates: start: 20091001, end: 20091001
  2. VAGIFEM [Suspect]
     Dosage: 10 UG, UNK
     Route: 067
     Dates: start: 20100101

REACTIONS (5)
  - BREAST DISORDER [None]
  - BREAST SWELLING [None]
  - NIPPLE PAIN [None]
  - UTERINE LEIOMYOMA [None]
  - VAGINAL HAEMORRHAGE [None]
